FAERS Safety Report 12471385 (Version 1)
Quarter: 2016Q2

REPORT INFORMATION
  Report Type: Spontaneous
  Country: US (occurrence: None)
  Receive Date: 20160615
  Receipt Date: 20160615
  Transmission Date: 20160815
  Serious: No
  Sender: FDA-Public Use
  Company Number: None

PATIENT
  Age: 86 Year
  Sex: Female
  Weight: 88.4 kg

DRUGS (14)
  1. NITROFURANTOIN, 100 MG ALVOGEN INC [Suspect]
     Active Substance: NITROFURANTOIN
     Indication: URINARY TRACT INFECTION
     Route: 048
     Dates: start: 20160530, end: 20160606
  2. CRANBERRY. [Concomitant]
     Active Substance: CRANBERRY
  3. ONDANSETRON [Concomitant]
     Active Substance: ONDANSETRON
  4. AMLODIPINE [Concomitant]
     Active Substance: AMLODIPINE BESYLATE
  5. ASPIRIN. [Concomitant]
     Active Substance: ASPIRIN
  6. LEVOTHYROXINE. [Concomitant]
     Active Substance: LEVOTHYROXINE
  7. POTASSIUM CL [Concomitant]
     Active Substance: POTASSIUM CHLORIDE
  8. LORATIDINE [Concomitant]
     Active Substance: LORATADINE
  9. MAGNESIUM HYDROXIDE. [Concomitant]
     Active Substance: MAGNESIUM HYDROXIDE
  10. BUMETANIDE. [Concomitant]
     Active Substance: BUMETANIDE
  11. ACETAMINOPHEN. [Concomitant]
     Active Substance: ACETAMINOPHEN
  12. ALLOPURINOL. [Concomitant]
     Active Substance: ALLOPURINOL
  13. LUTEIN [Concomitant]
     Active Substance: LUTEIN
  14. TRAMADOL. [Concomitant]
     Active Substance: TRAMADOL

REACTIONS (5)
  - Abasia [None]
  - Therapy cessation [None]
  - Dysphagia [None]
  - Chills [None]
  - Tremor [None]

NARRATIVE: CASE EVENT DATE: 20160606
